FAERS Safety Report 4649142-6 (Version None)
Quarter: 2005Q2

REPORT INFORMATION
  Report Type: 
  Country: None (occurrence: None)
  Receive Date: 20050429
  Receipt Date: 20050429
  Transmission Date: 20051028
  Serious: Yes (Hospitalization)
  Sender: FDA-Public Use
  Company Number: FR-GLAXOSMITHKLINE-B0379576A

PATIENT
  Age: 27 Year
  Sex: Female

DRUGS (2)
  1. FOSAMPRENAVIR [Suspect]
     Indication: HIV INFECTION
     Dosage: 1400MGD PER DAY
     Route: 048
     Dates: start: 20041029, end: 20041231
  2. RITONAVIR [Suspect]
     Indication: HIV INFECTION
     Dosage: 100MGD PER DAY
     Route: 048
     Dates: start: 20041029, end: 20041231

REACTIONS (6)
  - ALANINE AMINOTRANSFERASE INCREASED [None]
  - ASPARTATE AMINOTRANSFERASE INCREASED [None]
  - BLOOD ALKALINE PHOSPHATASE INCREASED [None]
  - BLOOD BILIRUBIN ABNORMAL [None]
  - CHROMATURIA [None]
  - TRANSAMINASES INCREASED [None]
